FAERS Safety Report 12286229 (Version 2)
Quarter: 2016Q4

REPORT INFORMATION
  Report Type: Spontaneous
  Country: US (occurrence: US)
  Receive Date: 20160420
  Receipt Date: 20161104
  Transmission Date: 20170207
  Serious: No
  Sender: FDA-Public Use
  Company Number: US-PFIZER INC-2016181939

PATIENT
  Sex: Female

DRUGS (4)
  1. LYRICA [Suspect]
     Active Substance: PREGABALIN
     Indication: TRIGEMINAL NEURALGIA
  2. OXCARBAZEPINE. [Suspect]
     Active Substance: OXCARBAZEPINE
     Dosage: UNK
  3. LYRICA [Suspect]
     Active Substance: PREGABALIN
     Indication: ORAL DISCOMFORT
     Dosage: 300 MG, 2X/DAY
  4. CYMBALTA [Concomitant]
     Active Substance: DULOXETINE HYDROCHLORIDE

REACTIONS (11)
  - Skin exfoliation [Unknown]
  - Eating disorder [Unknown]
  - Burning sensation [Not Recovered/Not Resolved]
  - Sinus congestion [Unknown]
  - Drug ineffective for unapproved indication [Unknown]
  - Rash [Unknown]
  - Nasopharyngitis [Unknown]
  - Pruritus [Unknown]
  - Therapeutic response unexpected [Unknown]
  - Increased appetite [Unknown]
  - Erythema [Unknown]
